FAERS Safety Report 16775255 (Version 2)
Quarter: 2019Q3

REPORT INFORMATION
  Report Type: Spontaneous
  Country: US (occurrence: US)
  Receive Date: 20190905
  Receipt Date: 20190913
  Transmission Date: 20191005
  Serious: Yes (Hospitalization, Other)
  Sender: FDA-Public Use
  Company Number: US-DRREDDYS-USA/USA/19/0113947

PATIENT
  Age: 22 Year
  Sex: Female

DRUGS (2)
  1. LORAZEPAM INJECTION USP, 2 MG/ML AND 4 MG/ML [Suspect]
     Active Substance: LORAZEPAM
     Indication: GENERALISED TONIC-CLONIC SEIZURE
     Route: 042
  2. NOREPINEPHRINE. [Suspect]
     Active Substance: NOREPINEPHRINE
     Indication: HYPOTENSION

REACTIONS (2)
  - Torsade de pointes [Recovering/Resolving]
  - Pulseless electrical activity [Recovering/Resolving]
